FAERS Safety Report 5022796-0 (Version None)
Quarter: 2006Q2

REPORT INFORMATION
  Report Type: 
  Country: None (occurrence: None)
  Receive Date: 20060426
  Receipt Date: 20060202
  Transmission Date: 20061013
  Serious: Yes (Other)
  Sender: FDA-Public Use
  Company Number: 2005158962

PATIENT
  Age: 54 Year
  Sex: Male
  Weight: 174.6349 kg

DRUGS (8)
  1. LYRICA [Suspect]
     Indication: PAIN
     Dosage: 75 MG (75 MG, 1 IN 1 D), ORAL
     Route: 048
     Dates: start: 20051107
  2. LYRICA [Suspect]
     Indication: TRIGEMINAL NEURALGIA
     Dosage: 75 MG (75 MG, 1 IN 1 D), ORAL
     Route: 048
     Dates: start: 20051107
  3. PERCOCET [Suspect]
     Indication: PAIN
     Dosage: ORAL
     Route: 048
  4. TIAZAC [Concomitant]
  5. SERZONE [Concomitant]
  6. ATIVAN [Concomitant]
  7. PERI-COLACE [Concomitant]
  8. ALL OTHER THERAPEUTIC PRODUCTS (ALL OTHER THERAPEUTIC PRODUCTS) [Suspect]
     Indication: PAIN
     Dates: start: 20051107, end: 20051114

REACTIONS (20)
  - ADVERSE EVENT [None]
  - ANXIETY [None]
  - BALANCE DISORDER [None]
  - BLOOD PRESSURE INCREASED [None]
  - DIFFICULTY IN WALKING [None]
  - DIZZINESS [None]
  - DRUG INEFFECTIVE [None]
  - DRUG INTERACTION [None]
  - DYSPNOEA [None]
  - FATIGUE [None]
  - INFLUENZA LIKE ILLNESS [None]
  - LETHARGY [None]
  - MALAISE [None]
  - MENTAL STATUS CHANGES [None]
  - MUSCULAR WEAKNESS [None]
  - NEURALGIA [None]
  - PALPITATIONS [None]
  - SOMNOLENCE [None]
  - SWELLING [None]
  - VENTRICULAR EXTRASYSTOLES [None]
